FAERS Safety Report 6516011-6 (Version None)
Quarter: 2009Q4

REPORT INFORMATION
  Report Type: 
  Country: None (occurrence: None)
  Receive Date: 20091223
  Receipt Date: 20090723
  Transmission Date: 20100525
  Serious: No
  Sender: FDA-Public Use
  Company Number: US-ABBOTT-09P-163-0587722-00

PATIENT
  Sex: Female
  Weight: 75.818 kg

DRUGS (4)
  1. LUPRON DEPOT [Suspect]
     Indication: ENDOMETRIOSIS
     Dates: start: 20090701
  2. CLARITIN [Concomitant]
     Indication: HYPERSENSITIVITY
  3. AGESTYN [Concomitant]
     Indication: HORMONE THERAPY
  4. MULTIPLE VITAMINS [Concomitant]
     Indication: ROUTINE HEALTH MAINTENANCE

REACTIONS (3)
  - HOT FLUSH [None]
  - INSOMNIA [None]
  - NIGHT SWEATS [None]
